FAERS Safety Report 18339578 (Version 1)
Quarter: 2020Q4

REPORT INFORMATION
  Report Type: Spontaneous
  Country: US (occurrence: US)
  Receive Date: 20201002
  Receipt Date: 20201002
  Transmission Date: 20210113
  Serious: Yes (Death, Other)
  Sender: FDA-Public Use
  Company Number: NVSC2020US265449

PATIENT
  Sex: Male

DRUGS (1)
  1. ENTRESTO [Suspect]
     Active Substance: SACUBITRIL\VALSARTAN
     Indication: PRODUCT USED FOR UNKNOWN INDICATION
     Dosage: UNK, UNKNOWN (TOOK 6 DOSES)
     Route: 065

REACTIONS (10)
  - Death [Fatal]
  - Unresponsive to stimuli [Unknown]
  - Loss of consciousness [Unknown]
  - Decreased appetite [Unknown]
  - Renal failure [Unknown]
  - Back pain [Unknown]
  - Hypotension [Unknown]
  - Sepsis [Unknown]
  - Asthenia [Unknown]
  - Fatigue [Unknown]
